FAERS Safety Report 9433013 (Version 1)
Quarter: 2013Q3

REPORT INFORMATION
  Report Type: Spontaneous
  Country: HR (occurrence: None)
  Receive Date: 20130729
  Receipt Date: 20130729
  Transmission Date: 20140515
  Serious: Yes (Hospitalization)
  Sender: FDA-Public Use
  Company Number: 2013P1012932

PATIENT
  Age: 23 Year
  Sex: Female

DRUGS (1)
  1. OXCARBAZEPINE [Suspect]
     Indication: COMPLEX PARTIAL SEIZURES
     Dates: start: 20070419, end: 20070515

REACTIONS (9)
  - Fatigue [None]
  - Decreased appetite [None]
  - Drug-induced liver injury [None]
  - Pyrexia [None]
  - Hepatic enzyme increased [None]
  - Lymphocytosis [None]
  - Blood cholesterol increased [None]
  - Pharyngitis [None]
  - Tonsillitis [None]
